FAERS Safety Report 10658214 (Version 3)
Quarter: 2021Q4

REPORT INFORMATION
  Report Type: Spontaneous
  Country: US (occurrence: US)
  Receive Date: 20141217
  Receipt Date: 20211115
  Transmission Date: 20220303
  Serious: Yes (Other)
  Sender: FDA-Public Use
  Company Number: US-ELI_LILLY_AND_COMPANY-US201411009862

PATIENT
  Age: 67 Year
  Sex: Female
  Weight: 39.909 kg

DRUGS (9)
  1. FORTEO [Interacting]
     Active Substance: TERIPARATIDE
     Indication: Osteoporosis
     Dosage: 20 UG, UNKNOWN
     Route: 058
     Dates: start: 201211
  2. FORTEO [Interacting]
     Active Substance: TERIPARATIDE
     Indication: Osteoporosis
     Dosage: 20 UG, UNKNOWN
     Route: 058
     Dates: start: 201211
  3. FORTEO [Interacting]
     Active Substance: TERIPARATIDE
     Dosage: 20 UG, UNKNOWN
     Route: 058
     Dates: start: 20130103
  4. FORTEO [Interacting]
     Active Substance: TERIPARATIDE
     Dosage: 20 UG, UNKNOWN
     Route: 058
     Dates: start: 20130103
  5. FORTEO [Interacting]
     Active Substance: TERIPARATIDE
     Dosage: 20 UG, UNKNOWN
     Route: 058
     Dates: end: 2014
  6. FORTEO [Interacting]
     Active Substance: TERIPARATIDE
     Dosage: 20 UG, UNKNOWN
     Route: 058
     Dates: end: 2014
  7. PROLIA [Suspect]
     Active Substance: DENOSUMAB
     Indication: Product used for unknown indication
     Dosage: UNK UNK, UNKNOWN
     Route: 065
  8. CLONAZEPAM [Concomitant]
     Active Substance: CLONAZEPAM
     Indication: Agoraphobia
     Dosage: 0.5 MG, BID
  9. VITAMIN D NOS [Concomitant]
     Active Substance: VITAMIN D NOS
     Indication: Product used for unknown indication
     Dosage: 10 MG

REACTIONS (16)
  - Macular degeneration [Not Recovered/Not Resolved]
  - Malaise [Unknown]
  - Rhinorrhoea [Unknown]
  - Arthritis [Not Recovered/Not Resolved]
  - Nasal cavity mass [Unknown]
  - Jaw disorder [Not Recovered/Not Resolved]
  - Gingival disorder [Not Recovered/Not Resolved]
  - Body height decreased [Not Recovered/Not Resolved]
  - Blood pressure decreased [Unknown]
  - Fatigue [Unknown]
  - Drug interaction [Unknown]
  - Vitamin D increased [Unknown]
  - Bone density abnormal [Not Recovered/Not Resolved]
  - Drug hypersensitivity [Recovered/Resolved]
  - Weight decreased [Not Recovered/Not Resolved]
  - Product dose omission issue [Unknown]

NARRATIVE: CASE EVENT DATE: 20140901
